FAERS Safety Report 9952096 (Version 1)
Quarter: 2014Q1

REPORT INFORMATION
  Report Type: Report from Study
  Country: US (occurrence: US)
  Receive Date: 20140304
  Receipt Date: 20140304
  Transmission Date: 20141002
  Serious: No
  Sender: FDA-Public Use
  Company Number: US-ABBVIE-13P-163-1078240-00

PATIENT
  Age: 50 Year
  Sex: Male

DRUGS (11)
  1. HUMIRA [Suspect]
     Indication: RHEUMATOID ARTHRITIS
     Route: 058
     Dates: start: 201208
  2. METHOTREXATE [Concomitant]
     Indication: PRODUCT USED FOR UNKNOWN INDICATION
  3. CYMBALTA [Concomitant]
     Indication: PRODUCT USED FOR UNKNOWN INDICATION
  4. SEROQUEL [Concomitant]
     Indication: INSOMNIA
  5. FOLIC ACID [Concomitant]
     Indication: VITAMIN SUPPLEMENTATION
     Dosage: DAILY
  6. PREDNISONE [Concomitant]
     Indication: RHEUMATOID ARTHRITIS
  7. HYDROCODONE [Concomitant]
     Indication: ARTHRALGIA
  8. TRAMADOL [Concomitant]
     Indication: ARTHRALGIA
  9. UNKNOWN MEDICATION [Concomitant]
     Indication: ANXIETY
  10. UNKNOWN MEDICATION [Concomitant]
     Indication: STRESS
  11. UNKNOWN MEDICATION [Concomitant]
     Indication: EMOTIONAL DISTRESS

REACTIONS (3)
  - Cough [Not Recovered/Not Resolved]
  - Rheumatoid arthritis [Not Recovered/Not Resolved]
  - Arthralgia [Not Recovered/Not Resolved]
